FAERS Safety Report 9057814 (Version 1)
Quarter: 2013Q1

REPORT INFORMATION
  Report Type: Report from Study
  Country: US (occurrence: US)
  Receive Date: 20130204
  Receipt Date: 20130204
  Transmission Date: 20140127
  Serious: Yes (Hospitalization)
  Sender: FDA-Public Use
  Company Number: US-ABBOTT-13P-163-1041775-00

PATIENT
  Sex: Female
  Weight: 72.64 kg

DRUGS (4)
  1. HUMIRA [Suspect]
     Indication: RHEUMATOID ARTHRITIS
     Route: 058
     Dates: start: 2010, end: 201301
  2. UNKNOWN MEDICATIONS [Concomitant]
     Indication: TRANSIENT ISCHAEMIC ATTACK
  3. UNKNOWN MEDICATIONS [Concomitant]
     Indication: CARDIAC DISORDER
  4. UNKNOWN MEDICATIONS [Concomitant]
     Indication: CARDIOVASCULAR DISORDER

REACTIONS (4)
  - Brain injury [Not Recovered/Not Resolved]
  - Cerebrovascular accident [Recovered/Resolved with Sequelae]
  - Transient ischaemic attack [Not Recovered/Not Resolved]
  - Distractibility [Not Recovered/Not Resolved]
